FAERS Safety Report 17198375 (Version 2)
Quarter: 2025Q3

REPORT INFORMATION
  Report Type: Spontaneous
  Country: EU (occurrence: EU)
  Receive Date: 20191225
  Receipt Date: 20250710
  Transmission Date: 20251021
  Serious: Yes (Other)
  Sender: AUROBINDO
  Company Number: EU-MLMSERVICE-20191203-1564856-1

PATIENT
  Age: 6 Year
  Sex: Male

DRUGS (7)
  1. MEROPENEM [Suspect]
     Active Substance: MEROPENEM
     Indication: Acinetobacter infection
     Dosage: 10 GRAM, ONCE A DAY (INCREASED INITIALLY )
     Route: 042
  2. MEROPENEM [Suspect]
     Active Substance: MEROPENEM
     Indication: Brain abscess
     Dosage: 2 GRAM, FOUR TIMES/DAY
     Route: 042
  3. MEROPENEM [Suspect]
     Active Substance: MEROPENEM
     Dosage: 15 G/DAY IN DOSES OF 2 G GIVEN OVER 3 H WITH A SINGLE DOSE OF 1 G/3 H ONCE DAILY
     Route: 042
  4. COLISTIN [Concomitant]
     Active Substance: COLISTIN
     Indication: Acinetobacter infection
     Route: 065
  5. COLISTIN [Concomitant]
     Active Substance: COLISTIN
     Indication: Brain abscess
  6. FOSFOMYCIN [Concomitant]
     Active Substance: FOSFOMYCIN
     Indication: Acinetobacter infection
     Route: 065
  7. FOSFOMYCIN [Concomitant]
     Active Substance: FOSFOMYCIN
     Indication: Brain abscess

REACTIONS (3)
  - Impaired gastric emptying [Unknown]
  - Vomiting [Unknown]
  - Prescribed overdose [Unknown]
